FAERS Safety Report 23468642 (Version 1)
Quarter: 2024Q1

REPORT INFORMATION
  Report Type: Spontaneous
  Country: US (occurrence: US)
  Receive Date: 20240202
  Receipt Date: 20240202
  Transmission Date: 20240410
  Serious: No
  Sender: FDA-Public Use
  Company Number: US-TAKEDA-2024TUS009315

PATIENT
  Age: 49 Year
  Sex: Female
  Weight: 52 kg

DRUGS (3)
  1. VYVANSE [Suspect]
     Active Substance: LISDEXAMFETAMINE DIMESYLATE
     Indication: Attention deficit hyperactivity disorder
     Dosage: 50 MILLIGRAM, QD
     Route: 065
     Dates: end: 20240122
  2. VYVANSE [Suspect]
     Active Substance: LISDEXAMFETAMINE DIMESYLATE
     Indication: Binge eating
  3. CONCERTA [Suspect]
     Active Substance: METHYLPHENIDATE HYDROCHLORIDE
     Indication: Product used for unknown indication
     Dosage: UNK
     Route: 065

REACTIONS (7)
  - Feeling abnormal [Unknown]
  - Disturbance in attention [Unknown]
  - Loss of personal independence in daily activities [Unknown]
  - Product availability issue [Unknown]
  - Drug ineffective [Unknown]
  - Depression [Unknown]
  - Product use issue [Unknown]

NARRATIVE: CASE EVENT DATE: 20240122
